FAERS Safety Report 7206476-9 (Version None)
Quarter: 2011Q1

REPORT INFORMATION
  Report Type: 
  Country: None (occurrence: None)
  Receive Date: 20110103
  Receipt Date: 20101221
  Transmission Date: 20110831
  Serious: Yes (Other)
  Sender: FDA-Public Use
  Company Number: JP-PFIZER INC-2010171010

PATIENT
  Age: 73 Year
  Sex: Male

DRUGS (2)
  1. SALAZOPYRIN [Suspect]
     Indication: COLITIS ULCERATIVE
     Dosage: UNK
     Route: 048
     Dates: start: 20070823, end: 20101104
  2. SALAZOPYRIN [Suspect]
     Dosage: 500 MG/DAY
     Dates: start: 20070823

REACTIONS (5)
  - GLOSSODYNIA [None]
  - DECREASED APPETITE [None]
  - FOLATE DEFICIENCY [None]
  - DYSGEUSIA [None]
  - PANCYTOPENIA [None]
